FAERS Safety Report 8598909-0 (Version None)
Quarter: 2012Q3

REPORT INFORMATION
  Report Type: 
  Country: None (occurrence: None)
  Receive Date: 20120816
  Receipt Date: 20120813
  Transmission Date: 20120928
  Serious: Yes (Hospitalization, Other)
  Sender: FDA-Public Use
  Company Number: US-BAYER-2012-054535

PATIENT
  Age: 29 Year
  Sex: Female
  Weight: 90.703 kg

DRUGS (4)
  1. ULTRAVIST 150 [Suspect]
     Indication: COMPUTERISED TOMOGRAM
     Dosage: 150 ML, ONCE
     Dates: start: 20120518
  2. ZOFRAN [Concomitant]
     Indication: PREMEDICATION
  3. DILAUDID [Concomitant]
     Indication: PREMEDICATION
  4. ULTRAVIST 150 [Suspect]

REACTIONS (1)
  - CONTRAST MEDIA REACTION [None]
